FAERS Safety Report 4923401-1 (Version None)
Quarter: 2006Q1

REPORT INFORMATION
  Report Type: 
  Country: None (occurrence: None)
  Receive Date: 20060223
  Receipt Date: 20060223
  Transmission Date: 20060701
  Serious: Yes (Other)
  Sender: FDA-Public Use
  Company Number: None

PATIENT
  Age: 59 Year
  Sex: Male
  Weight: 154.223 kg

DRUGS (5)
  1. OXYCODONE HCL [Suspect]
     Dosage: 1 QAM, 1 NOON 2 HS
     Dates: start: 20050705
  2. KLONOPIN [Concomitant]
  3. XANAX [Concomitant]
  4. ZANAFLEX [Concomitant]
  5. VICODIN ES [Concomitant]

REACTIONS (2)
  - DYSGEUSIA [None]
  - NAUSEA [None]
